FAERS Safety Report 21504501 (Version 1)
Quarter: 2022Q4

REPORT INFORMATION
  Report Type: Spontaneous
  Country: US (occurrence: US)
  Receive Date: 20221025
  Receipt Date: 20221025
  Transmission Date: 20230113
  Serious: No
  Sender: FDA-Public Use
  Company Number: US-MYLANLABS-2022M1111909

PATIENT
  Sex: Male
  Weight: 78.02 kg

DRUGS (1)
  1. LYRICA [Suspect]
     Active Substance: PREGABALIN
     Indication: Product used for unknown indication
     Dosage: UNK, 50 MILLIGRAM
     Route: 048

REACTIONS (2)
  - Product colour issue [Unknown]
  - Circumstance or information capable of leading to medication error [Unknown]
